FAERS Safety Report 14497299 (Version 1)
Quarter: 2018Q1

REPORT INFORMATION
  Report Type: Spontaneous
  Country: GB (occurrence: GB)
  Receive Date: 20180207
  Receipt Date: 20180207
  Transmission Date: 20180509
  Serious: Yes (Hospitalization)
  Sender: FDA-Public Use
  Company Number: GB-ASTRAZENECA-2018SE14116

PATIENT
  Sex: Female

DRUGS (3)
  1. INSULIN [Concomitant]
     Active Substance: INSULIN NOS
  2. METFORMIN [Concomitant]
     Active Substance: METFORMIN HYDROCHLORIDE
  3. FORXIGA [Suspect]
     Active Substance: DAPAGLIFLOZIN
     Dosage: 10 UNKNOWN
     Route: 048

REACTIONS (3)
  - Type 1 diabetes mellitus [Unknown]
  - Ill-defined disorder [Unknown]
  - Diabetic ketoacidosis [Unknown]
